FAERS Safety Report 22784589 (Version 7)
Quarter: 2023Q4

REPORT INFORMATION
  Report Type: Report from Study
  Country: JP (occurrence: JP)
  Receive Date: 20230804
  Receipt Date: 20231129
  Transmission Date: 20240109
  Serious: Yes (Hospitalization, Other)
  Sender: FDA-Public Use
  Company Number: JP-JNJFOC-20230613663

PATIENT
  Age: 24 Year
  Sex: Female
  Weight: 53 kg

DRUGS (18)
  1. EPOPROSTENOL SODIUM [Suspect]
     Active Substance: EPOPROSTENOL SODIUM
     Indication: Pulmonary hypertension
     Dosage: DOSE UNKNOWN
     Route: 042
  2. EPOPROSTENOL SODIUM [Suspect]
     Active Substance: EPOPROSTENOL SODIUM
     Indication: Pulmonary arterial hypertension
     Dosage: 0.5NG/KG/MIN
     Route: 041
     Dates: start: 20210215
  3. EPOPROSTENOL SODIUM [Suspect]
     Active Substance: EPOPROSTENOL SODIUM
     Route: 041
     Dates: start: 202203
  4. EPOPROSTENOL SODIUM [Suspect]
     Active Substance: EPOPROSTENOL SODIUM
     Route: 041
  5. EPOPROSTENOL SODIUM [Suspect]
     Active Substance: EPOPROSTENOL SODIUM
     Route: 041
  6. UPTRAVI [Suspect]
     Active Substance: SELEXIPAG
     Indication: Pulmonary arterial hypertension
     Route: 048
  7. UPTRAVI [Suspect]
     Active Substance: SELEXIPAG
     Indication: Pulmonary arterial hypertension
     Route: 048
     Dates: start: 20220608
  8. OPSUMIT [Suspect]
     Active Substance: MACITENTAN
     Indication: Pulmonary hypertension
     Route: 048
     Dates: start: 20210206
  9. OPSUMIT [Suspect]
     Active Substance: MACITENTAN
     Indication: Pulmonary arterial hypertension
  10. LEVOFLOXACIN HEMIHYDRATE [Suspect]
     Active Substance: LEVOFLOXACIN
     Indication: Product used for unknown indication
     Route: 065
     Dates: start: 20230216, end: 20230227
  11. POTASSIUM CHLORIDE [Concomitant]
     Active Substance: POTASSIUM CHLORIDE
     Dosage: AFTER BREAKFAST,AFTER DINNER
     Route: 065
     Dates: start: 20220719
  12. BILANOA OD [Concomitant]
     Dosage: AT BEDTIME
     Route: 048
     Dates: start: 20220718
  13. SPIRONOLACTONE [Concomitant]
     Active Substance: SPIRONOLACTONE
     Route: 048
     Dates: start: 20210206
  14. SAMSCA [Concomitant]
     Active Substance: TOLVAPTAN
     Route: 048
     Dates: start: 20220415
  15. VONOPRAZAN FUMARATE [Concomitant]
     Active Substance: VONOPRAZAN FUMARATE
     Dosage: AFTER BREAKFAST
     Route: 048
  16. ADCIRCA [Concomitant]
     Active Substance: TADALAFIL
     Dosage: AFTER BREAKFAST, AFTER DINNER
     Route: 048
     Dates: start: 20210208
  17. FUROSEMIDE [Concomitant]
     Active Substance: FUROSEMIDE
     Route: 065
     Dates: start: 20210206
  18. FUROSEMIDE [Concomitant]
     Active Substance: FUROSEMIDE
     Dosage: AFTER LUNCH
     Route: 065

REACTIONS (6)
  - Lymphadenopathy [Not Recovered/Not Resolved]
  - Erythema multiforme [Unknown]
  - Rash [Not Recovered/Not Resolved]
  - Dermatitis atopic [Unknown]
  - Off label use [Unknown]
  - Haemoptysis [Unknown]

NARRATIVE: CASE EVENT DATE: 20220101
